FAERS Safety Report 11486433 (Version 2)
Quarter: 2015Q4

REPORT INFORMATION
  Report Type: Report from Study
  Country: US (occurrence: US)
  Receive Date: 20150910
  Receipt Date: 20151001
  Transmission Date: 20160304
  Serious: Yes (Other)
  Sender: FDA-Public Use
  Company Number: US-AMGEN-USASP2015092632

PATIENT
  Age: 72 Year
  Sex: Male
  Weight: 80.27 kg

DRUGS (2)
  1. ENBREL [Suspect]
     Active Substance: ETANERCEPT
     Indication: RHEUMATOID ARTHRITIS
     Dosage: 50 MG, QWK
     Route: 065
     Dates: start: 20120427
  2. SEROQUEL [Suspect]
     Active Substance: QUETIAPINE FUMARATE
     Indication: SLEEP DISORDER
     Dosage: UNK
     Route: 065

REACTIONS (9)
  - Lymphostasis [Unknown]
  - Injection site pain [Unknown]
  - Prostate cancer [Unknown]
  - Sleep disorder [Unknown]
  - Injection site discomfort [Unknown]
  - Injection site reaction [Unknown]
  - Weight increased [Unknown]
  - Hypersomnia [Unknown]
  - Pain in extremity [Unknown]
